FAERS Safety Report 15221528 (Version 1)
Quarter: 2018Q3

REPORT INFORMATION
  Report Type: Spontaneous
  Country: US (occurrence: US)
  Receive Date: 20180731
  Receipt Date: 20180731
  Transmission Date: 20181010
  Serious: Yes (Disabling, Other)
  Sender: FDA-Public Use
  Company Number: US-ABBVIE-18S-163-2432380-00

PATIENT
  Age: 29 Year
  Sex: Female
  Weight: 47.6 kg

DRUGS (26)
  1. ROCURONIUM [Interacting]
     Active Substance: ROCURONIUM BROMIDE
     Indication: ANAESTHESIA
     Route: 065
     Dates: start: 20180330, end: 20180330
  2. LEVOTHYROXINE. [Concomitant]
     Active Substance: LEVOTHYROXINE
     Indication: HYPOPITUITARISM
     Route: 065
  3. DEXAMETHASONE. [Concomitant]
     Active Substance: DEXAMETHASONE
     Indication: HYPOPITUITARISM
     Route: 065
     Dates: end: 20180329
  4. SEVOFLURANE. [Suspect]
     Active Substance: SEVOFLURANE
     Indication: ANAESTHESIA
     Dosage: UNKNOWN
     Route: 065
     Dates: start: 20180330, end: 20180330
  5. EPIDIOLEX [Concomitant]
     Active Substance: CANNABIDIOL
     Route: 065
     Dates: start: 20180703
  6. BANZEL [Interacting]
     Active Substance: RUFINAMIDE
     Indication: LENNOX-GASTAUT SYNDROME
     Dosage: 1600MG AM AND 1800MG PM
     Route: 048
     Dates: end: 20180429
  7. BANZEL [Interacting]
     Active Substance: RUFINAMIDE
     Route: 048
     Dates: start: 201805, end: 201806
  8. KEPPRA [Concomitant]
     Active Substance: LEVETIRACETAM
     Indication: LENNOX-GASTAUT SYNDROME
     Route: 048
  9. DEXAMETHASONE. [Concomitant]
     Active Substance: DEXAMETHASONE
     Route: 065
     Dates: start: 2018
  10. BANZEL [Interacting]
     Active Substance: RUFINAMIDE
     Route: 048
     Dates: start: 2018
  11. PROPOFOL. [Interacting]
     Active Substance: PROPOFOL
     Indication: ANAESTHESIA
     Route: 065
     Dates: start: 20180330, end: 20180330
  12. BANZEL [Interacting]
     Active Substance: RUFINAMIDE
     Dosage: 1200MG AM AND 1400MG PM
     Route: 048
     Dates: start: 20180503, end: 2018
  13. ONDANSETRON [Concomitant]
     Active Substance: ONDANSETRON
     Indication: PROPHYLAXIS OF NAUSEA AND VOMITING
     Route: 065
     Dates: start: 20180330
  14. SOLU?MEDROL [Concomitant]
     Active Substance: METHYLPREDNISOLONE SODIUM SUCCINATE
     Indication: PRODUCT USED FOR UNKNOWN INDICATION
     Route: 065
     Dates: start: 201803
  15. LIDOCAINE. [Concomitant]
     Active Substance: LIDOCAINE
     Indication: PRODUCT USED FOR UNKNOWN INDICATION
     Route: 065
     Dates: start: 201803
  16. TOPAMAX [Concomitant]
     Active Substance: TOPIRAMATE
     Indication: LENNOX-GASTAUT SYNDROME
     Route: 048
  17. ESTRADIOL. [Concomitant]
     Active Substance: ESTRADIOL
     Indication: HYPOPITUITARISM
     Route: 065
  18. DEXAMETHASONE. [Concomitant]
     Active Substance: DEXAMETHASONE
     Route: 065
     Dates: start: 20180330, end: 2018
  19. BANZEL [Interacting]
     Active Substance: RUFINAMIDE
     Route: 048
     Dates: start: 201805, end: 201805
  20. BANZEL [Interacting]
     Active Substance: RUFINAMIDE
     Dosage: 400MG AM AND 600MG PM
     Route: 048
     Dates: start: 201806, end: 2018
  21. HALOPERIDOL. [Concomitant]
     Active Substance: HALOPERIDOL
     Indication: PROPHYLAXIS OF NAUSEA AND VOMITING
     Route: 065
     Dates: start: 20180330
  22. PROGESTERONE. [Concomitant]
     Active Substance: PROGESTERONE
     Indication: HYPOPITUITARISM
     Dosage: 200 MG,DAILY FOR DAY 1?12 OF EACH MONTH
     Route: 065
  23. BANZEL [Interacting]
     Active Substance: RUFINAMIDE
     Dosage: 1400MG AM AND 1600MG PM
     Route: 048
     Dates: start: 20180430, end: 20180502
  24. EPIDIOLEX [Concomitant]
     Active Substance: CANNABIDIOL
     Indication: LENNOX-GASTAUT SYNDROME
     Route: 065
     Dates: end: 20180702
  25. SOMATROPIN. [Concomitant]
     Active Substance: SOMATROPIN
     Indication: HYPOPITUITARISM
     Route: 058
  26. LANSOPRAZOLE. [Concomitant]
     Active Substance: LANSOPRAZOLE
     Indication: IMPAIRED GASTRIC EMPTYING
     Route: 065

REACTIONS (9)
  - Impaired gastric emptying [Recovering/Resolving]
  - Seizure [Unknown]
  - Vomiting [Recovering/Resolving]
  - Drug level increased [Recovering/Resolving]
  - Drug interaction [Unknown]
  - Asthenia [Unknown]
  - Gastrointestinal motility disorder [Unknown]
  - Fluid intake reduced [Unknown]
  - Fall [Unknown]

NARRATIVE: CASE EVENT DATE: 201803
